FAERS Safety Report 6440418-9 (Version None)
Quarter: 2009Q4

REPORT INFORMATION
  Report Type: 
  Country: None (occurrence: None)
  Receive Date: 20091113
  Receipt Date: 20091103
  Transmission Date: 20100525
  Serious: Yes (Other)
  Sender: FDA-Public Use
  Company Number: US-PFIZER INC-2009293297

PATIENT
  Sex: Male
  Weight: 104.32 kg

DRUGS (3)
  1. VIAGRA [Suspect]
     Indication: ERECTILE DYSFUNCTION
     Dosage: 100 MG, AS NEEDED
     Route: 048
     Dates: start: 20080101
  2. TAMSULOSIN [Concomitant]
     Indication: PROSTATIC DISORDER
  3. TOPROL-XL [Concomitant]
     Indication: HYPERTENSION

REACTIONS (3)
  - BLOOD TESTOSTERONE DECREASED [None]
  - BLOOD TRIGLYCERIDES INCREASED [None]
  - DRUG EFFECT DECREASED [None]
